FAERS Safety Report 8097636-6 (Version None)
Quarter: 2012Q1

REPORT INFORMATION
  Report Type: 
  Country: None (occurrence: None)
  Receive Date: 20120128
  Receipt Date: 20110701
  Transmission Date: 20120608
  Serious: No
  Sender: FDA-Public Use
  Company Number: US-ABBOTT-11P-163-0836539-00

PATIENT
  Sex: Female

DRUGS (14)
  1. FUROSEMIDE [Concomitant]
     Indication: CARDIAC FAILURE CONGESTIVE
     Route: 048
  2. VITAMIN D [Concomitant]
     Indication: VITAMIN SUPPLEMENTATION
     Route: 048
  3. DESOXIMETASONE [Concomitant]
     Indication: PRURITUS
     Route: 061
  4. CLOBETASOL [Concomitant]
     Indication: PSORIASIS
     Route: 061
  5. VITAMIN B-12 [Concomitant]
     Indication: VITAMIN SUPPLEMENTATION
     Route: 048
  6. EXTRA STRENGTH TYLENOL [Concomitant]
     Indication: DISCOMFORT
     Dosage: EVERY 8 HOURS PRN
     Route: 048
  7. TRIAMCINOLONE [Concomitant]
     Indication: PSORIASIS
     Route: 061
  8. EXTRA STRENGTH TYLENOL [Concomitant]
     Indication: PSORIASIS
  9. HUMIRA [Suspect]
     Route: 058
     Dates: start: 20110624
  10. LOSARTAN POTASSIUM [Concomitant]
     Indication: HYPERTENSION
     Route: 048
  11. OMEPRAZOLE [Concomitant]
     Indication: GASTROOESOPHAGEAL REFLUX DISEASE
     Route: 048
  12. POTASSIUM [Concomitant]
     Indication: MINERAL SUPPLEMENTATION
     Route: 048
  13. SUDAFED 12 HOUR [Concomitant]
     Indication: ALLERGIC SINUSITIS
     Dosage: EVERY 12 HOURS PRN
     Route: 048
  14. HUMIRA [Suspect]
     Indication: PSORIASIS
     Route: 058
     Dates: start: 20110602, end: 20110610

REACTIONS (3)
  - NAUSEA [None]
  - SWOLLEN TONGUE [None]
  - HYPOAESTHESIA ORAL [None]
